FAERS Safety Report 4629459-1 (Version None)
Quarter: 2005Q2

REPORT INFORMATION
  Report Type: 
  Country: None (occurrence: None)
  Receive Date: 20050405
  Receipt Date: 20050323
  Transmission Date: 20051028
  Serious: Yes (Hospitalization)
  Sender: FDA-Public Use
  Company Number: 213335

PATIENT
  Age: 76 Year
  Sex: Male

DRUGS (17)
  1. MABTHERA                   (RITUXIMAB) [Suspect]
     Indication: DIFFUSE LARGE B-CELL LYMPHOMA
     Dosage: 375 MG/M2
     Route: 042
     Dates: start: 20041230, end: 20050311
  2. CYCLOPHOSPHAMIDE [Suspect]
     Indication: DIFFUSE LARGE B-CELL LYMPHOMA
     Route: 042
     Dates: start: 20040131, end: 20050315
  3. DOXORUBICIN HYDROCHLORIDE [Suspect]
     Indication: DIFFUSE LARGE B-CELL LYMPHOMA
     Route: 042
     Dates: start: 20040131, end: 20050315
  4. VINCRISTINE [Suspect]
     Indication: DIFFUSE LARGE B-CELL LYMPHOMA
     Route: 042
     Dates: start: 20041230, end: 20050315
  5. PREDNISONE [Suspect]
     Indication: DIFFUSE LARGE B-CELL LYMPHOMA
     Route: 042
     Dates: start: 20041230, end: 20050315
  6. DISALUNIL (HYDROCHLOROTHIAZIDE) [Concomitant]
  7. BISOPROLOL FUMARATE AND HYDROCHLOROTHIAZIDE [Concomitant]
  8. TAMSULOSIN (TAMSULOSIN HYDDROCHLORIDE) [Concomitant]
  9. ATORVASTATIN (ATORVASTATIN CALCIUM) [Concomitant]
  10. CAPTOPRIL [Concomitant]
  11. ISOSORBIDE (ISOSORBIDE NOS) [Concomitant]
  12. SULFAMETHOXAZOLE AND TRIMETHOPRIM [Concomitant]
  13. THIOCTACID (THIOCTIC ACID) [Concomitant]
  14. GABAPENTIN [Concomitant]
  15. ALLOPURINOL [Concomitant]
  16. ENOXAPARIN SODIUM [Concomitant]
  17. FILGRASTIM (FILGRASTIM) [Concomitant]

REACTIONS (8)
  - AGRANULOCYTOSIS [None]
  - COUGH [None]
  - HAEMOGLOBIN DECREASED [None]
  - PLATELET COUNT DECREASED [None]
  - PNEUMONIA [None]
  - RESPIRATORY FAILURE [None]
  - SEPTIC SHOCK [None]
  - VENTRICULAR FIBRILLATION [None]
